FAERS Safety Report 14390049 (Version 3)
Quarter: 2018Q2

REPORT INFORMATION
  Report Type: Spontaneous
  Country: CA (occurrence: CA)
  Receive Date: 20180115
  Receipt Date: 20180412
  Transmission Date: 20180711
  Serious: Yes (Other)
  Sender: FDA-Public Use
  Company Number: CA-AMGEN-CANSP2018000816

PATIENT
  Age: 55 Year
  Sex: Female

DRUGS (3)
  1. ENBREL [Suspect]
     Active Substance: ETANERCEPT
     Indication: RHEUMATOID ARTHRITIS
     Dosage: UNK
     Route: 065
     Dates: start: 2010, end: 2017
  2. METHOTREXATE. [Suspect]
     Active Substance: METHOTREXATE
     Indication: RHEUMATOID ARTHRITIS
     Dosage: UNK
     Route: 065
     Dates: start: 2007, end: 2010
  3. MEDROL [Concomitant]
     Active Substance: METHYLPREDNISOLONE
     Indication: PRODUCT USED FOR UNKNOWN INDICATION
     Dosage: 6 MG, QD
     Route: 065
     Dates: start: 2005

REACTIONS (3)
  - Cellulitis [Unknown]
  - Rheumatoid arthritis [Unknown]
  - Drug effect decreased [Unknown]

NARRATIVE: CASE EVENT DATE: 201711
